FAERS Safety Report 4553534-3 (Version None)
Quarter: 2004Q4

REPORT INFORMATION
  Report Type: 
  Country: None (occurrence: None)
  Receive Date: 20041227
  Receipt Date: 20041007
  Transmission Date: 20050328
  Serious: No
  Sender: FDA-Public Use
  Company Number: 04P-163-0276558-00

PATIENT
  Age: 60 Year
  Sex: Female
  Weight: 97.5234 kg

DRUGS (8)
  1. HUMIRA [Suspect]
     Indication: RHEUMATOID ARTHRITIS
     Dosage: 40 MG, 1 IN 2 WK, SUBCUTANEOUS
     Route: 058
     Dates: start: 20040601
  2. ZITHROMAX [Concomitant]
  3. STEROID [Concomitant]
  4. ENTEX CAP [Concomitant]
  5. DILTIAZEM [Concomitant]
  6. CELEXA [Concomitant]
  7. TOPIRAMATE [Concomitant]
  8. MULTIVITAMIN [Concomitant]

REACTIONS (2)
  - INJECTION SITE BURNING [None]
  - UPPER RESPIRATORY TRACT INFECTION [None]
